FAERS Safety Report 14008981 (Version 1)
Quarter: 2017Q3

REPORT INFORMATION
  Report Type: Spontaneous
  Country: CN (occurrence: CN)
  Receive Date: 20170925
  Receipt Date: 20170925
  Transmission Date: 20171128
  Serious: Yes (Hospitalization, Other)
  Sender: FDA-Public Use
  Company Number: CN-TOLMAR, INC.-TOLG20170403

PATIENT
  Age: 29 Year
  Sex: Female

DRUGS (3)
  1. METRONIDAZOLE. [Suspect]
     Active Substance: METRONIDAZOLE
     Indication: PRODUCT USED FOR UNKNOWN INDICATION
     Dosage: UNKNOWN, FOREIGN CASE
     Route: 065
  2. CEPHALOSPORIN [Suspect]
     Active Substance: UNSPECIFIED INGREDIENT
     Indication: PRODUCT USED FOR UNKNOWN INDICATION
     Dosage: UNKNOWN, FOREIGN CASE
     Route: 065
  3. CLOTRIMAZOLE. [Suspect]
     Active Substance: CLOTRIMAZOLE
     Indication: PRODUCT USED FOR UNKNOWN INDICATION
     Dosage: UNKNOWN, FOREIGN CASE
     Route: 065

REACTIONS (5)
  - Jaundice [Recovering/Resolving]
  - Pruritus [Recovering/Resolving]
  - Chromaturia [Recovering/Resolving]
  - Vanishing bile duct syndrome [Recovering/Resolving]
  - Drug-induced liver injury [Recovering/Resolving]
